FAERS Safety Report 5505849-X (Version None)
Quarter: 2007Q4

REPORT INFORMATION
  Report Type: 
  Country: None (occurrence: None)
  Receive Date: 20071102
  Receipt Date: 20071022
  Transmission Date: 20080405
  Serious: Yes (Other)
  Sender: FDA-Public Use
  Company Number: US-PFIZER INC-2007089719

PATIENT
  Sex: Female
  Weight: 81.818 kg

DRUGS (9)
  1. DILANTIN [Suspect]
     Indication: CONVULSION
     Dates: start: 20071002, end: 20071003
  2. DILANTIN [Suspect]
  3. DAPSONE [Concomitant]
  4. CENESTIN [Concomitant]
  5. PRILOSEC [Concomitant]
  6. LEVOTHYROXINE SODIUM [Concomitant]
  7. ZANTAC [Concomitant]
  8. XALATAN [Concomitant]
  9. PREDNISONE [Concomitant]

REACTIONS (2)
  - COELIAC DISEASE [None]
  - DERMATITIS HERPETIFORMIS [None]
